FAERS Safety Report 5624886-8 (Version None)
Quarter: 2008Q1

REPORT INFORMATION
  Report Type: 
  Country: None (occurrence: None)
  Receive Date: 20080213
  Receipt Date: 20070410
  Transmission Date: 20080703
  Serious: Yes (Other)
  Sender: FDA-Public Use
  Company Number: US-ASTRAZENECA-2007UW02019

PATIENT
  Age: 34 Year
  Sex: Male
  Weight: 127.3 kg

DRUGS (5)
  1. SEROQUEL [Suspect]
     Indication: BIPOLAR DISORDER
     Route: 048
     Dates: start: 20040101, end: 20060101
  2. SEROQUEL [Suspect]
     Indication: INSOMNIA
     Route: 048
     Dates: start: 20040101, end: 20060101
  3. RISPERDAL [Concomitant]
     Route: 048
     Dates: start: 19970101, end: 20060101
  4. ZYPREXA [Concomitant]
     Route: 048
     Dates: start: 20020101
  5. LITHIUM CARBONATE [Concomitant]
     Route: 048
     Dates: start: 20050101

REACTIONS (3)
  - EAR INFECTION [None]
  - HEPATITIS C [None]
  - TYPE 2 DIABETES MELLITUS [None]
